FAERS Safety Report 23725828 (Version 1)
Quarter: 2024Q2

REPORT INFORMATION
  Report Type: Report from Study
  Country: US (occurrence: US)
  Receive Date: 20240410
  Receipt Date: 20240410
  Transmission Date: 20240716
  Serious: Yes (Other)
  Sender: FDA-Public Use
  Company Number: US-ABBVIE-5710886

PATIENT
  Age: 54 Year
  Sex: Female

DRUGS (2)
  1. HUMIRA [Suspect]
     Active Substance: ADALIMUMAB
     Indication: Ankylosing spondylitis
     Route: 058
     Dates: start: 20231114
  2. LYRICA [Concomitant]
     Active Substance: PREGABALIN
     Indication: Neuralgia

REACTIONS (5)
  - Sciatica [Unknown]
  - Arthralgia [Recovering/Resolving]
  - Arthritis [Unknown]
  - Gait disturbance [Unknown]
  - Bursitis [Unknown]

NARRATIVE: CASE EVENT DATE: 20240402
